FAERS Safety Report 8143118-2 (Version None)
Quarter: 2012Q1

REPORT INFORMATION
  Report Type: 
  Country: None (occurrence: None)
  Receive Date: 20120217
  Receipt Date: 20120214
  Transmission Date: 20120608
  Serious: No
  Sender: FDA-Public Use
  Company Number: US-PFIZER INC-2012038817

PATIENT
  Sex: Female
  Weight: 95 kg

DRUGS (6)
  1. CHANTIX [Suspect]
     Indication: SMOKING CESSATION THERAPY
     Dosage: 0.5 MG, 1X/DAY
     Route: 048
     Dates: start: 20120212
  2. ACETAMINOPHEN [Concomitant]
     Indication: LIMB INJURY
     Dosage: UNK
  3. HYDROCHLOROTHIAZIDE [Concomitant]
     Indication: HYPERTENSION
     Dosage: UNK
  4. ADVAIR DISKUS 100/50 [Concomitant]
     Indication: BRONCHITIS
     Dosage: UNK
  5. ATENOLOL [Concomitant]
     Dosage: UNK
  6. IBUPROFEN [Concomitant]
     Indication: LIMB INJURY
     Dosage: UNK

REACTIONS (2)
  - MALAISE [None]
  - VOMITING [None]
